FAERS Safety Report 12242070 (Version 1)
Quarter: 2016Q2

REPORT INFORMATION
  Report Type: Spontaneous
  Country: US (occurrence: None)
  Receive Date: 20160405
  Receipt Date: 20160405
  Transmission Date: 20160815
  Serious: No
  Sender: FDA-Public Use
  Company Number: None

PATIENT
  Age: 27 Year
  Sex: Female
  Weight: 76.66 kg

DRUGS (1)
  1. PAROXETINE. [Suspect]
     Active Substance: PAROXETINE
     Indication: ANXIETY
     Dosage: 30 TABLET(S) ONCE A DAY TAKEN BY MOUTH
     Route: 048
     Dates: start: 20160203

REACTIONS (12)
  - Palpitations [None]
  - Anxiety [None]
  - Dizziness [None]
  - Nervousness [None]
  - Libido decreased [None]
  - Vision blurred [None]
  - Disturbance in attention [None]
  - Confusional state [None]
  - Paraesthesia [None]
  - Insomnia [None]
  - Withdrawal syndrome [None]
  - Syncope [None]

NARRATIVE: CASE EVENT DATE: 20160331
